FAERS Safety Report 19911884 (Version 1)
Quarter: 2021Q4

REPORT INFORMATION
  Report Type: Spontaneous
  Country: US (occurrence: US)
  Receive Date: 20211003
  Receipt Date: 20211003
  Transmission Date: 20220303
  Serious: Yes (Disabling, Other)
  Sender: FDA-Public Use
  Company Number: None

PATIENT
  Age: 40 Year
  Sex: Male
  Weight: 106.2 kg

DRUGS (3)
  1. LOTRIMIN ANTIFUNGAL (MICONAZOLE NITRATE) [Suspect]
     Active Substance: MICONAZOLE NITRATE
  2. PANTOPRAZOLE [Concomitant]
     Active Substance: PANTOPRAZOLE
  3. CITALOPRAM [Concomitant]
     Active Substance: CITALOPRAM HYDROBROMIDE

REACTIONS (3)
  - Fatigue [None]
  - Urinary tract disorder [None]
  - Reproductive tract disorder [None]

NARRATIVE: CASE EVENT DATE: 20210601
